FAERS Safety Report 18009337 (Version 6)
Quarter: 2021Q4

REPORT INFORMATION
  Report Type: Report from Study
  Country: US (occurrence: US)
  Receive Date: 20200711
  Receipt Date: 20211201
  Transmission Date: 20220303
  Serious: Yes (Other)
  Sender: FDA-Public Use
  Company Number: US-ABBVIE-20K-163-3324524-00

PATIENT
  Sex: Male

DRUGS (4)
  1. VENCLEXTA [Suspect]
     Active Substance: VENETOCLAX
     Indication: Chronic lymphocytic leukaemia
     Route: 048
     Dates: start: 20200203
  2. VENCLEXTA [Suspect]
     Active Substance: VENETOCLAX
     Route: 048
  3. VENCLEXTA [Suspect]
     Active Substance: VENETOCLAX
     Route: 048
  4. GAZYVA [Suspect]
     Active Substance: OBINUTUZUMAB
     Indication: Chronic lymphocytic leukaemia
     Route: 048

REACTIONS (4)
  - Infusion [Unknown]
  - Dental cleaning [Unknown]
  - Myalgia [Not Recovered/Not Resolved]
  - Arthralgia [Not Recovered/Not Resolved]

NARRATIVE: CASE EVENT DATE: 20200101
